FAERS Safety Report 22008588 (Version 1)
Quarter: 2023Q1

REPORT INFORMATION
  Report Type: Other
  Country: CA (occurrence: CA)
  Receive Date: 20230219
  Receipt Date: 20230219
  Transmission Date: 20230418
  Serious: Yes (Other)
  Sender: FDA-Public Use
  Company Number: CA-002147023-PHHY2016CA016580

PATIENT
  Age: 51 Year
  Sex: Female

DRUGS (1)
  1. LUCENTIS [Suspect]
     Active Substance: RANIBIZUMAB
     Indication: Diabetic retinal oedema
     Dosage: UNK (LEFT EYE)
     Route: 050
     Dates: start: 20130214

REACTIONS (3)
  - Diabetic retinopathy [Unknown]
  - Diabetic retinal oedema [Unknown]
  - Disease progression [Unknown]
